FAERS Safety Report 16206697 (Version 2)
Quarter: 2019Q3

REPORT INFORMATION
  Report Type: Spontaneous
  Country: CA (occurrence: CA)
  Receive Date: 20190417
  Receipt Date: 20190921
  Transmission Date: 20191004
  Serious: Yes (Death, Hospitalization)
  Sender: FDA-Public Use
  Company Number: CA-TEVA-2019-CA-1039045

PATIENT
  Age: 68 Year
  Sex: Male
  Weight: 89 kg

DRUGS (19)
  1. TRAZODONE [Concomitant]
     Active Substance: TRAZODONE HYDROCHLORIDE
  2. ESBRIET [Suspect]
     Active Substance: PIRFENIDONE
     Indication: IDIOPATHIC PULMONARY FIBROSIS
     Dosage: 801 MILLIGRAM DAILY;
     Route: 048
  3. ESBRIET [Suspect]
     Active Substance: PIRFENIDONE
     Dosage: 801 MILLIGRAM DAILY;
     Route: 048
  4. CIPRO [Concomitant]
     Active Substance: CIPROFLOXACIN HYDROCHLORIDE
  5. PANTOPRAZOLE [Concomitant]
     Active Substance: PANTOPRAZOLE
  6. TAMSULOSIN [Concomitant]
     Active Substance: TAMSULOSIN
  7. VENLAFAXINE XR [Suspect]
     Active Substance: VENLAFAXINE HYDROCHLORIDE
     Route: 065
  8. GLUCOPHAGE [Concomitant]
     Active Substance: METFORMIN HYDROCHLORIDE
  9. ESBRIET [Suspect]
     Active Substance: PIRFENIDONE
     Dosage: 2403 MILLIGRAM DAILY;
     Route: 048
  10. ATENOLOL TABLETS, BP [Concomitant]
     Active Substance: ATENOLOL
  11. METFORMIN [Suspect]
     Active Substance: METFORMIN HYDROCHLORIDE
     Indication: PRODUCT USED FOR UNKNOWN INDICATION
     Route: 065
  12. SITAGLIPTIN PHOSPHATE [Concomitant]
     Active Substance: SITAGLIPTIN PHOSPHATE
  13. GLICLAZIDE [Concomitant]
     Active Substance: GLICLAZIDE
  14. EZETROL [Concomitant]
     Active Substance: EZETIMIBE
  15. OXAZEPAM. [Concomitant]
     Active Substance: OXAZEPAM
  16. ROSUVASTATIN. [Concomitant]
     Active Substance: ROSUVASTATIN
  17. VENLAFAXINE XR [Suspect]
     Active Substance: VENLAFAXINE HYDROCHLORIDE
     Indication: DEPRESSION
     Route: 065
  18. CANDESARTAN. [Concomitant]
     Active Substance: CANDESARTAN
  19. MUPIROCIN. [Concomitant]
     Active Substance: MUPIROCIN

REACTIONS (25)
  - Food aversion [Fatal]
  - Gastric disorder [Fatal]
  - Weight decreased [Fatal]
  - Depression [Fatal]
  - Dizziness [Fatal]
  - Dyspnoea [Fatal]
  - Exercise tolerance decreased [Fatal]
  - Hyperkalaemia [Fatal]
  - Hypophagia [Fatal]
  - Diarrhoea [Fatal]
  - Nausea [Fatal]
  - Pneumonia [Fatal]
  - Decreased appetite [Fatal]
  - Herpes zoster [Fatal]
  - Oxygen saturation decreased [Fatal]
  - Skin discolouration [Fatal]
  - Drug ineffective [Fatal]
  - Abdominal pain [Fatal]
  - Anxiety [Fatal]
  - Dysphagia [Fatal]
  - Musculoskeletal pain [Fatal]
  - Pain of skin [Fatal]
  - Asthenia [Fatal]
  - Neck pain [Fatal]
  - Nephrolithiasis [Fatal]
